FAERS Safety Report 8375536-1 (Version None)
Quarter: 2012Q1

REPORT INFORMATION
  Report Type: 
  Country: None (occurrence: None)
  Receive Date: 20120323
  Receipt Date: 20110301
  Transmission Date: 20120608
  Serious: Yes (Hospitalization, Other)
  Sender: FDA-Public Use
  Company Number: 163-21880-11021292

PATIENT
  Age: 73 Year
  Sex: Female
  Weight: 85.7298 kg

DRUGS (18)
  1. DYAZIDE [Concomitant]
  2. CENTRUM (CENTRUM) [Concomitant]
  3. LECITHIN (LECITHIN) [Concomitant]
  4. PREVACID [Concomitant]
  5. VELCADE [Concomitant]
  6. COUMADIN [Concomitant]
  7. L-CARNITINE (LEVOCARNITINE HYDROCHLORIDE) [Concomitant]
  8. FISH OIL (FISH OIL) [Concomitant]
  9. LISINOPRIL [Concomitant]
  10. LYRICA [Concomitant]
  11. ALPHA-LIPOIC ACID (THIOCTIC ACID) [Concomitant]
  12. VITAMIN D [Concomitant]
  13. BREWER'S YEAST (YEAST DRIED) [Concomitant]
  14. ACETAMINOPHEN [Concomitant]
  15. PREDNISONE TAB [Concomitant]
  16. REVLIMID [Suspect]
     Indication: MULTIPLE MYELOMA
     Dosage: 5 MG, DAILY FOR 21 DAYS, EVERY 28 DAYS, PO, 5 MG, 5 DAYS OF 7, X3, QM, PO
     Route: 048
     Dates: start: 20101201
  17. REVLIMID [Suspect]
     Indication: MULTIPLE MYELOMA
     Dosage: 5 MG, DAILY FOR 21 DAYS, EVERY 28 DAYS, PO, 5 MG, 5 DAYS OF 7, X3, QM, PO
     Route: 048
     Dates: start: 20110101
  18. L-GLUTAMINE (GLUTAMIC ACID) [Concomitant]

REACTIONS (7)
  - TREMOR [None]
  - NEUTROPENIA [None]
  - CELLULITIS [None]
  - PYREXIA [None]
  - THERMAL BURN [None]
  - PLATELET COUNT DECREASED [None]
  - PNEUMONIA [None]
